FAERS Safety Report 4945667-4 (Version None)
Quarter: 2006Q1

REPORT INFORMATION
  Report Type: 
  Country: None (occurrence: None)
  Receive Date: 20060316
  Receipt Date: 20060307
  Transmission Date: 20060701
  Serious: Yes (Other)
  Sender: FDA-Public Use
  Company Number: GB-JNJFOC-20060302125

PATIENT
  Age: 45 Year
  Sex: Female

DRUGS (3)
  1. RISPERDAL [Suspect]
     Indication: DRUG USE FOR UNKNOWN INDICATION
     Route: 048
  2. SEROQUEL [Suspect]
     Indication: DRUG USE FOR UNKNOWN INDICATION
  3. PROCYCLINE [Concomitant]

REACTIONS (4)
  - FACIAL PALSY [None]
  - GALACTORRHOEA [None]
  - PARAESTHESIA [None]
  - TONGUE SPASM [None]
